FAERS Safety Report 7035263-X (Version None)
Quarter: 2010Q4

REPORT INFORMATION
  Report Type: 
  Country: None (occurrence: None)
  Receive Date: 20101008
  Receipt Date: 20100930
  Transmission Date: 20110411
  Serious: Yes (Other)
  Sender: FDA-Public Use
  Company Number: A0884339A

PATIENT
  Sex: Male

DRUGS (2)
  1. ADVAIR DISKUS 100/50 [Suspect]
     Indication: ASTHMA
     Route: 065
  2. SALBUTAMOL [Suspect]
     Indication: ASTHMA
     Route: 065

REACTIONS (3)
  - DRUG INTOLERANCE [None]
  - MYOCARDIAL INFARCTION [None]
  - TACHYCARDIA [None]
